FAERS Safety Report 24844441 (Version 4)
Quarter: 2025Q1

REPORT INFORMATION
  Report Type: Report from Study
  Country: ES (occurrence: ES)
  Receive Date: 20250115
  Receipt Date: 20250304
  Transmission Date: 20250409
  Serious: Yes (Hospitalization)
  Sender: ABBVIE
  Company Number: ES-ABBVIE-6064010

PATIENT
  Age: 76 Year
  Sex: Male

DRUGS (2)
  1. DUOPA [Suspect]
     Active Substance: CARBIDOPA\LEVODOPA
     Indication: Parkinson^s disease
     Route: 050
     Dates: start: 20170420
  2. DUOPA [Suspect]
     Active Substance: CARBIDOPA\LEVODOPA
     Route: 050

REACTIONS (11)
  - Herpes zoster [Recovered/Resolved]
  - Disorientation [Recovered/Resolved]
  - Condition aggravated [Recovered/Resolved]
  - Freezing phenomenon [Recovered/Resolved]
  - Restlessness [Recovered/Resolved]
  - Confusional state [Recovered/Resolved]
  - Musculoskeletal chest pain [Recovered/Resolved]
  - Fatigue [Recovered/Resolved]
  - Therapeutic product effect incomplete [Unknown]
  - Fatigue [Recovered/Resolved]
  - Somnolence [Unknown]

NARRATIVE: CASE EVENT DATE: 20241201
